FAERS Safety Report 9353424 (Version 1)
Quarter: 2013Q2

REPORT INFORMATION
  Report Type: Other
  Country: US (occurrence: US)
  Receive Date: 20130618
  Receipt Date: 20130618
  Transmission Date: 20140414
  Serious: Yes (Death, Hospitalization)
  Sender: FDA-Public Use
  Company Number: US-SHIRE-ALL1-2013-04091

PATIENT
  Age: 64 Year
  Sex: Male

DRUGS (1)
  1. FOSRENOL [Suspect]
     Indication: PRODUCT USED FOR UNKNOWN INDICATION
     Dosage: 1000 MG, OTHER(3 PER DAY)
     Route: 048
     Dates: start: 201201

REACTIONS (3)
  - Death [Fatal]
  - Hospitalisation [Unknown]
  - Treatment noncompliance [Unknown]
